FAERS Safety Report 16643267 (Version 3)
Quarter: 2019Q3

REPORT INFORMATION
  Report Type: Spontaneous
  Country: AR (occurrence: AR)
  Receive Date: 20190729
  Receipt Date: 20190903
  Transmission Date: 20191004
  Serious: No
  Sender: FDA-Public Use
  Company Number: AR-MYLANLABS-2019M1070780

PATIENT
  Age: 42 Year
  Sex: Female

DRUGS (1)
  1. LAPENAX [Suspect]
     Active Substance: CLOZAPINE
     Indication: PRODUCT USED FOR UNKNOWN INDICATION
     Dosage: UNK
     Dates: start: 20141218

REACTIONS (3)
  - Mean cell haemoglobin decreased [Recovering/Resolving]
  - Mean cell volume decreased [Not Recovered/Not Resolved]
  - Mean cell haemoglobin concentration decreased [Recovering/Resolving]

NARRATIVE: CASE EVENT DATE: 20190722
